FAERS Safety Report 25146119 (Version 1)
Quarter: 2025Q2

REPORT INFORMATION
  Report Type: Report from Study
  Country: US (occurrence: US)
  Receive Date: 20250401
  Receipt Date: 20250401
  Transmission Date: 20250716
  Serious: Yes (Hospitalization, Other)
  Sender: GILEAD
  Company Number: US-GILEAD-2025-0708967

PATIENT
  Age: 61 Year
  Sex: Female

DRUGS (22)
  1. AZTREONAM LYSINE [Suspect]
     Active Substance: AZTREONAM LYSINE
     Indication: Bronchiectasis
     Dosage: 75 MG, TID (INHALE 1 VIAL (75 MG) THREE TIMES DAILY, 28 DAYS ON 28 DAYS OFF)
     Route: 055
     Dates: start: 20240716
  2. ELIQUIS [Concomitant]
     Active Substance: APIXABAN
  3. FLONASE ALLERGY RELIEF [Concomitant]
     Active Substance: FLUTICASONE PROPIONATE
  4. MEDROL [Concomitant]
     Active Substance: METHYLPREDNISOLONE
  5. LOPERAMIDE HYDROCHLORIDE [Concomitant]
     Active Substance: LOPERAMIDE HYDROCHLORIDE
  6. ZOLOFT [Concomitant]
     Active Substance: SERTRALINE HYDROCHLORIDE
  7. ZOSYN [Concomitant]
     Active Substance: PIPERACILLIN SODIUM\TAZOBACTAM SODIUM
  8. ALBUTEROL\IPRATROPIUM [Concomitant]
     Active Substance: ALBUTEROL\IPRATROPIUM
  9. IMODIUM [Concomitant]
     Active Substance: LOPERAMIDE HYDROCHLORIDE
  10. GAMMAGARD LIQUID [Concomitant]
     Active Substance: HUMAN IMMUNOGLOBULIN G
  11. MAGNESIUM [Concomitant]
     Active Substance: MAGNESIUM
  12. MELATONIN [Concomitant]
     Active Substance: MELATONIN
  13. MENADIONE [Concomitant]
     Active Substance: MENADIONE
  14. FERROUS SULFATE [Concomitant]
     Active Substance: FERROUS SULFATE
  15. BIFIDOBACTERIUM ANIMALIS LACTIS [Concomitant]
     Active Substance: BIFIDOBACTERIUM ANIMALIS LACTIS
  16. VITAMIN D3 [Concomitant]
     Active Substance: CHOLECALCIFEROL
  17. ALPHA LIPOIC ACID [Concomitant]
     Active Substance: .ALPHA.-LIPOIC ACID
  18. THYROID [Concomitant]
     Active Substance: LEVOTHYROXINE\LIOTHYRONINE
  19. MUCINEX [Concomitant]
     Active Substance: GUAIFENESIN
  20. AZITHROMYCIN [Concomitant]
     Active Substance: AZITHROMYCIN
  21. SODIUM CHLORIDE;WATER [Concomitant]
  22. BUDESONIDE [Concomitant]
     Active Substance: BUDESONIDE

REACTIONS (2)
  - Pneumonia [Not Recovered/Not Resolved]
  - Product use in unapproved indication [Not Recovered/Not Resolved]

NARRATIVE: CASE EVENT DATE: 20240716
